FAERS Safety Report 16724916 (Version 2)
Quarter: 2019Q4

REPORT INFORMATION
  Report Type: Report from Study
  Country: US (occurrence: US)
  Receive Date: 20190821
  Receipt Date: 20191022
  Transmission Date: 20200122
  Serious: Yes (Hospitalization)
  Sender: FDA-Public Use
  Company Number: US-MYLANLABS-2019M1077162

PATIENT
  Age: 20 Month
  Sex: Male
  Weight: 12.4 kg

DRUGS (7)
  1. DACTINOMYCIN [Suspect]
     Active Substance: DACTINOMYCIN
     Indication: EMBRYONAL RHABDOMYOSARCOMA
     Dosage: 0.6 MILLIGRAM, CYCLE
     Route: 042
     Dates: start: 20190523, end: 20190523
  2. IRINOTECAN HCL [Suspect]
     Active Substance: IRINOTECAN HYDROCHLORIDE
     Indication: EMBRYONAL RHABDOMYOSARCOMA
     Dosage: 140 MILLIGRAM, CYCLE
     Route: 042
     Dates: start: 20190613, end: 20190617
  3. CYCLOPHOSPHAMIDE. [Suspect]
     Active Substance: CYCLOPHOSPHAMIDE
     Indication: EMBRYONAL RHABDOMYOSARCOMA
     Dosage: 660 MG, CYCLE
     Route: 042
     Dates: start: 20190523
  4. TEMSIROLIMUS. [Suspect]
     Active Substance: TEMSIROLIMUS
     Indication: EMBRYONAL RHABDOMYOSARCOMA
     Dosage: 32.5 MILLIGRAM, CYCLE
     Route: 042
     Dates: start: 20190529, end: 20190619
  5. VINCRISTINE SULFATE. [Suspect]
     Active Substance: VINCRISTINE SULFATE
     Indication: EMBRYONAL RHABDOMYOSARCOMA
     Dosage: 4 MG, CYCLE
     Route: 042
     Dates: start: 20190523, end: 20190619
  6. VINCRISTINE SULFATE. [Suspect]
     Active Substance: VINCRISTINE SULFATE
     Dosage: CYCLE 2 WEEK 6 VINCRISTINE IV
     Route: 042
     Dates: end: 20190627
  7. TEMSIROLIMUS. [Suspect]
     Active Substance: TEMSIROLIMUS
     Dosage: CYCLE 2 WEEK 6
     Route: 042
     Dates: end: 20190627

REACTIONS (7)
  - Peripheral motor neuropathy [Not Recovered/Not Resolved]
  - Colitis [Not Recovered/Not Resolved]
  - Stomatitis [Recovered/Resolved]
  - Febrile neutropenia [Not Recovered/Not Resolved]
  - Abdominal infection [Not Recovered/Not Resolved]
  - Pneumonia [Not Recovered/Not Resolved]
  - Upper respiratory tract infection [Not Recovered/Not Resolved]

NARRATIVE: CASE EVENT DATE: 20190625
